FAERS Safety Report 18411768 (Version 1)
Quarter: 2020Q4

REPORT INFORMATION
  Report Type: Spontaneous
  Country: HU (occurrence: HU)
  Receive Date: 20201021
  Receipt Date: 20201021
  Transmission Date: 20210114
  Serious: Yes (Death)
  Sender: FDA-Public Use
  Company Number: HU-PFIZER INC-2020406158

PATIENT
  Age: 36 Year
  Sex: Female

DRUGS (7)
  1. TECENTRIQ [Suspect]
     Active Substance: ATEZOLIZUMAB
     Indication: NON-SMALL CELL LUNG CANCER METASTATIC
     Dosage: 1200 MG, EVERY 3 WEEKS (ON 19MAY2020, 6 CYCLES, COMBINATION THERAPY WITH TECENTRIQ + AVASTIN + PACLI
     Route: 041
     Dates: start: 20200130, end: 20200519
  2. AVASTIN [Suspect]
     Active Substance: BEVACIZUMAB
     Indication: NON-SMALL CELL LUNG CANCER METASTATIC
     Dosage: 7.5 MG/KG, EVERY 3 WEEKS (2 CYCLES OF THE AVASTIN + TECENTRIQ MAINTENANCE THERAPY)
     Route: 065
     Dates: end: 20200519
  3. LORVIQUA [Suspect]
     Active Substance: LORLATINIB
     Indication: NON-SMALL CELL LUNG CANCER METASTATIC
     Dosage: UNK
     Route: 065
     Dates: start: 20200619
  4. CARBOPLATIN. [Suspect]
     Active Substance: CARBOPLATIN
     Indication: NON-SMALL CELL LUNG CANCER METASTATIC
     Dosage: AREA UNDER THE CURVE (AUC) 6
     Route: 065
     Dates: start: 20191212
  5. PACLITAXEL. [Suspect]
     Active Substance: PACLITAXEL
     Indication: NON-SMALL CELL LUNG CANCER METASTATIC
     Dosage: 200 MG/M2
     Route: 065
     Dates: start: 20191212, end: 20200519
  6. TECENTRIQ [Suspect]
     Active Substance: ATEZOLIZUMAB
     Dosage: 1200 MG, EVERY 3 WEEKS (ON 19MAY2020, 2 CYCLES OF THE AVASTIN + TECENTRIQ MAINTENANCE THERAPY)
     Route: 041
     Dates: end: 20200519
  7. AVASTIN [Suspect]
     Active Substance: BEVACIZUMAB
     Dosage: 7.5 MG/KG, EVERY 3 WEEKS (6 CYCLES, COMBINATION THERAPY WITH TECENTRIQ + AVASTIN + PACLITAXEL/CARBOP
     Route: 065
     Dates: start: 20191212, end: 20200519

REACTIONS (3)
  - Mediastinal disorder [Fatal]
  - Pleural effusion [Fatal]
  - Neoplasm progression [Fatal]

NARRATIVE: CASE EVENT DATE: 20200609
